FAERS Safety Report 20675312 (Version 3)
Quarter: 2022Q3

REPORT INFORMATION
  Report Type: Spontaneous
  Country: FR (occurrence: FR)
  Receive Date: 20220405
  Receipt Date: 20220809
  Transmission Date: 20221026
  Serious: Yes (Life-Threatening, Hospitalization, Other)
  Sender: FDA-Public Use
  Company Number: FR-PFIZER INC-202200511085

PATIENT
  Age: 73 Year
  Sex: Male

DRUGS (2)
  1. PAXLOVID [Interacting]
     Active Substance: NIRMATRELVIR\RITONAVIR
     Indication: COVID-19 treatment
     Dosage: 3 DF, 2X/DAY (2 DF OF PF-07321332 + 1 DF OF RITONAVIR)
     Route: 048
     Dates: start: 20220329, end: 20220329
  2. KYPROLIS [Interacting]
     Active Substance: CARFILZOMIB
     Indication: Plasma cell myeloma
     Dosage: UNK
     Route: 041
     Dates: end: 20220328

REACTIONS (10)
  - Multiple organ dysfunction syndrome [Unknown]
  - Thrombotic microangiopathy [Not Recovered/Not Resolved]
  - Malignant hypertension [Recovered/Resolved]
  - Ejection fraction decreased [Recovering/Resolving]
  - Hypertensive crisis [Unknown]
  - Dyspnoea [Unknown]
  - Pyrexia [Unknown]
  - C-reactive protein increased [Unknown]
  - Drug interaction [Unknown]
  - Toxicity to various agents [Unknown]

NARRATIVE: CASE EVENT DATE: 20220328
